FAERS Safety Report 13501844 (Version 5)
Quarter: 2022Q1

REPORT INFORMATION
  Report Type: Other
  Country: CA (occurrence: CA)
  Receive Date: 20170502
  Receipt Date: 20220331
  Transmission Date: 20220423
  Serious: Yes (Other)
  Sender: FDA-Public Use
  Company Number: CA-002147023-PHHY2017CA062908

PATIENT
  Age: 49 Year
  Sex: Male

DRUGS (8)
  1. XOLAIR [Suspect]
     Active Substance: OMALIZUMAB
     Indication: Asthma
     Route: 058
     Dates: start: 20130228
  2. XOLAIR [Suspect]
     Active Substance: OMALIZUMAB
     Route: 058
     Dates: start: 20170425, end: 20170425
  3. XOLAIR [Suspect]
     Active Substance: OMALIZUMAB
     Route: 058
  4. XOLAIR [Suspect]
     Active Substance: OMALIZUMAB
     Route: 058
  5. SYMBICORT [Concomitant]
     Active Substance: BUDESONIDE\FORMOTEROL FUMARATE DIHYDRATE
     Indication: Product used for unknown indication
     Route: 065
  6. SINGULAIR [Concomitant]
     Active Substance: MONTELUKAST SODIUM
     Indication: Product used for unknown indication
     Route: 065
  7. NASONEX [Concomitant]
     Active Substance: MOMETASONE FUROATE
     Indication: Product used for unknown indication
     Route: 065
  8. SYNTHROID [Concomitant]
     Active Substance: LEVOTHYROXINE SODIUM
     Indication: Product used for unknown indication
     Route: 065

REACTIONS (7)
  - Ear neoplasm [Unknown]
  - Deafness unilateral [Not Recovered/Not Resolved]
  - Tinnitus [Not Recovered/Not Resolved]
  - Blood thyroid stimulating hormone abnormal [Not Recovered/Not Resolved]
  - Inappropriate schedule of product administration [Unknown]
  - Product dose omission issue [Unknown]
  - Product availability issue [Unknown]

NARRATIVE: CASE EVENT DATE: 20140201
